FAERS Safety Report 17445143 (Version 6)
Quarter: 2020Q3

REPORT INFORMATION
  Report Type: Spontaneous
  Country: US (occurrence: US)
  Receive Date: 20200221
  Receipt Date: 20200722
  Transmission Date: 20201102
  Serious: Yes (Hospitalization, Other)
  Sender: FDA-Public Use
  Company Number: US-PFIZER INC-2020076037

PATIENT
  Age: 55 Year
  Sex: Female

DRUGS (2)
  1. MOBIC [Concomitant]
     Active Substance: MELOXICAM
     Indication: RHEUMATOID ARTHRITIS
     Dosage: UNK
  2. XELJANZ XR [Suspect]
     Active Substance: TOFACITINIB CITRATE
     Indication: RHEUMATOID ARTHRITIS
     Dosage: 11 MG, 1X/DAY
     Route: 048
     Dates: start: 20191108

REACTIONS (6)
  - Blood sodium decreased [Recovered/Resolved]
  - Cataract [Recovering/Resolving]
  - Infection [Unknown]
  - Skin ulcer [Unknown]
  - Pneumonia [Recovering/Resolving]
  - Rheumatoid arthritis [Unknown]
